FAERS Safety Report 12236073 (Version 1)
Quarter: 2016Q2

REPORT INFORMATION
  Report Type: Report from Study
  Country: LB (occurrence: LB)
  Receive Date: 20160404
  Receipt Date: 20160404
  Transmission Date: 20160815
  Serious: Yes (Death, Hospitalization)
  Sender: FDA-Public Use
  Company Number: PHHY2014LB028723

PATIENT
  Age: 77 Year
  Sex: Female

DRUGS (3)
  1. ASPIRIN. [Concomitant]
     Active Substance: ASPIRIN
     Indication: BACK PAIN
     Dosage: 1 DF, UNK
     Route: 048
  2. ACLASTA [Suspect]
     Active Substance: ZOLEDRONIC ACID
     Indication: BACK PAIN
  3. ACLASTA [Suspect]
     Active Substance: ZOLEDRONIC ACID
     Indication: OSTEOPOROSIS
     Dosage: 5 MG, UNK
     Route: 042
     Dates: start: 20150410

REACTIONS (7)
  - Haemolytic anaemia [Fatal]
  - Bone pain [Unknown]
  - Vomiting [Recovered/Resolved]
  - Pyrexia [Unknown]
  - Intervertebral disc disorder [Unknown]
  - Pain in extremity [Unknown]
  - Abdominal pain upper [Recovered/Resolved]

NARRATIVE: CASE EVENT DATE: 20150411
